FAERS Safety Report 6580332-1 (Version None)
Quarter: 2010Q1

REPORT INFORMATION
  Report Type: 
  Country: None (occurrence: None)
  Receive Date: 20100212
  Receipt Date: 20100111
  Transmission Date: 20100710
  Serious: No
  Sender: FDA-Public Use
  Company Number: US-ALLERGAN-1000291US

PATIENT
  Sex: Male

DRUGS (1)
  1. COMBIGAN [Suspect]
     Indication: GLAUCOMA
     Dosage: 2 GTT, BID
     Route: 047
     Dates: start: 20070101

REACTIONS (4)
  - DRY EYE [None]
  - FOREIGN BODY SENSATION IN EYES [None]
  - OEDEMA PERIPHERAL [None]
  - RASH [None]
